FAERS Safety Report 11051889 (Version 1)
Quarter: 2015Q2

REPORT INFORMATION
  Report Type: Spontaneous
  Country: None (occurrence: None)
  Receive Date: 20150420
  Receipt Date: 20150420
  Transmission Date: 20150821
  Serious: No
  Sender: FDA-Public Use
  Company Number: None

PATIENT
  Age: 46 Year
  Sex: Male
  Weight: 70 kg

DRUGS (3)
  1. ULTRAZX [Suspect]
     Active Substance: DIETARY SUPPLEMENT
     Indication: WEIGHT CONTROL
     Dosage: 1 CAPSULE
     Route: 048
     Dates: start: 20150101, end: 20150131
  2. PHENOLPHTHALEIN [Suspect]
     Active Substance: PHENOLPHTHALEIN
  3. SIBUTRAMINE [Suspect]
     Active Substance: SIBUTRAMINE

REACTIONS (1)
  - Product quality issue [None]
